FAERS Safety Report 10230257 (Version 1)
Quarter: 2014Q2

REPORT INFORMATION
  Report Type: Spontaneous
  Country: US (occurrence: US)
  Receive Date: 20140611
  Receipt Date: 20140611
  Transmission Date: 20141212
  Serious: Yes (Hospitalization, Other)
  Sender: FDA-Public Use
  Company Number: US-009507513-1406USA002799

PATIENT
  Age: 18 Year
  Sex: Female

DRUGS (3)
  1. ISENTRESS [Suspect]
     Indication: HIV INFECTION
     Dosage: UNK
     Route: 048
     Dates: start: 20121223, end: 2013
  2. LAMIVUDINE (+) ZIDOVUDINE [Concomitant]
     Indication: HIV INFECTION
  3. LOPINAVIR (+) RITONAVIR [Concomitant]
     Indication: HIV INFECTION

REACTIONS (2)
  - Drug reaction with eosinophilia and systemic symptoms [Recovered/Resolved]
  - Exposure during pregnancy [Recovered/Resolved]
